FAERS Safety Report 19465586 (Version 4)
Quarter: 2023Q2

REPORT INFORMATION
  Report Type: Spontaneous
  Country: US (occurrence: US)
  Receive Date: 20210624
  Receipt Date: 20230629
  Transmission Date: 20230721
  Serious: Yes (Other)
  Sender: FDA-Public Use
  Company Number: US-GILEAD-2021-0537451

PATIENT
  Age: 51 Year
  Sex: Male
  Weight: 64.41 kg

DRUGS (58)
  1. ATRIPLA [Suspect]
     Active Substance: EFAVIRENZ\EMTRICITABINE\TENOFOVIR DISOPROXIL FUMARATE
     Indication: HIV infection
     Dosage: UNK
     Route: 048
     Dates: start: 2006, end: 201108
  2. ATRIPLA [Suspect]
     Active Substance: EFAVIRENZ\EMTRICITABINE\TENOFOVIR DISOPROXIL FUMARATE
     Dosage: UNK
     Route: 048
     Dates: start: 2008
  3. COMBIVIR [Concomitant]
     Active Substance: LAMIVUDINE\ZIDOVUDINE
  4. CRIXIVAN [Concomitant]
     Active Substance: INDINAVIR SULFATE
  5. EPIVIR [Concomitant]
     Active Substance: LAMIVUDINE
  6. EPZICOM [Concomitant]
     Active Substance: ABACAVIR SULFATE\LAMIVUDINE
  7. NORVIR [Concomitant]
     Active Substance: RITONAVIR
  8. RETROVIR [Concomitant]
     Active Substance: ZIDOVUDINE
  9. PREZCOBIX [Concomitant]
     Active Substance: COBICISTAT\DARUNAVIR ETHANOLATE
  10. TIVICAY [Concomitant]
     Active Substance: DOLUTEGRAVIR SODIUM
  11. TRIUMEQ [Concomitant]
     Active Substance: ABACAVIR SULFATE\DOLUTEGRAVIR SODIUM\LAMIVUDINE
  12. VIDEX EC [Concomitant]
     Active Substance: DIDANOSINE
  13. ZIAGEN [Concomitant]
     Active Substance: ABACAVIR SULFATE
  14. METHIMAZOLE [Concomitant]
     Active Substance: METHIMAZOLE
  15. SUSTIVA [Concomitant]
     Active Substance: EFAVIRENZ
  16. DIAZEPAM [Concomitant]
     Active Substance: DIAZEPAM
  17. SERTRALINE HYDROCHLORIDE [Concomitant]
     Active Substance: SERTRALINE HYDROCHLORIDE
  18. BENZONATATE [Concomitant]
     Active Substance: BENZONATATE
  19. LIDOCAINE [Concomitant]
     Active Substance: LIDOCAINE
  20. AZITHROMYCIN [Concomitant]
     Active Substance: AZITHROMYCIN
  21. FLUTICASONE PROPIONATE [Concomitant]
     Active Substance: FLUTICASONE PROPIONATE
  22. ATROVENT HFA [Concomitant]
     Active Substance: IPRATROPIUM BROMIDE
  23. AMOXICILLIN [Concomitant]
     Active Substance: AMOXICILLIN
  24. METRONIDAZOLE [Concomitant]
     Active Substance: METRONIDAZOLE
  25. CHANTIX [Concomitant]
     Active Substance: VARENICLINE TARTRATE
  26. ACETAMINOPHEN AND CODEINE [Concomitant]
     Active Substance: ACETAMINOPHEN\CODEINE PHOSPHATE
  27. ACETAMINOPHEN\OXYCODONE HYDROCHLORIDE [Concomitant]
     Active Substance: ACETAMINOPHEN\OXYCODONE HYDROCHLORIDE
  28. CIPROFLOXACIN HYDROCHLORIDE [Concomitant]
     Active Substance: CIPROFLOXACIN HYDROCHLORIDE
  29. PENICILLIN G [Concomitant]
     Active Substance: PENICILLIN G
  30. ANDROGEL [Concomitant]
     Active Substance: TESTOSTERONE
  31. SULFAMETHOXAZOLE AND TRIMETHOPRIM [Concomitant]
     Active Substance: SULFAMETHOXAZOLE\TRIMETHOPRIM
  32. PROVENTIL HFA [Concomitant]
     Active Substance: ALBUTEROL SULFATE
  33. HYDROCODONE BITARTRATE AND ACETAMINOPHEN [Concomitant]
     Active Substance: ACETAMINOPHEN\HYDROCODONE BITARTRATE
  34. MEGESTROL [Concomitant]
     Active Substance: MEGESTROL
  35. PROMETHAZINE [Concomitant]
     Active Substance: PROMETHAZINE HYDROCHLORIDE
  36. LOSARTAN POTASSIUM [Concomitant]
     Active Substance: LOSARTAN POTASSIUM
  37. TIZANIDINE HYDROCHLORIDE [Concomitant]
     Active Substance: TIZANIDINE HYDROCHLORIDE
  38. ABACAVIR\LAMIVUDINE [Concomitant]
     Active Substance: ABACAVIR\LAMIVUDINE
  39. OXYCODONE HYDROCHLORIDE [Concomitant]
     Active Substance: OXYCODONE HYDROCHLORIDE
  40. METHYLPREDNISOLONE [Concomitant]
     Active Substance: METHYLPREDNISOLONE
  41. EFAVIRENZ [Concomitant]
     Active Substance: EFAVIRENZ
  42. DOXYCYCLINE [Concomitant]
     Active Substance: DOXYCYCLINE
  43. GABAPENTIN [Concomitant]
     Active Substance: GABAPENTIN
  44. ASPIRIN [Concomitant]
     Active Substance: ASPIRIN
  45. VALIUM [Concomitant]
     Active Substance: DIAZEPAM
  46. IPRATROPIUM BROMIDE [Concomitant]
     Active Substance: IPRATROPIUM BROMIDE\IPRATROPIUM BROMIDE ANHYDROUS
  47. ALLEGRA [Concomitant]
     Active Substance: FEXOFENADINE HYDROCHLORIDE
  48. FLONASE [Concomitant]
     Active Substance: FLUTICASONE PROPIONATE
  49. AMOXICILLIN\CLAVULANIC ACID [Concomitant]
     Active Substance: AMOXICILLIN\CLAVULANIC ACID
  50. TUSSIONEX PENNKINETIC [Concomitant]
     Active Substance: CHLORPHENIRAMINE\HYDROCODONE
  51. BACTRIM [Concomitant]
     Active Substance: SULFAMETHOXAZOLE\TRIMETHOPRIM
  52. FLUCONAZOLE [Concomitant]
     Active Substance: FLUCONAZOLE
  53. FLAGYL [Concomitant]
     Active Substance: METRONIDAZOLE\METRONIDAZOLE HYDROCHLORIDE
  54. ALLOPURINOL [Concomitant]
     Active Substance: ALLOPURINOL
  55. DEXAMETHASONE [Concomitant]
     Active Substance: DEXAMETHASONE
  56. VITAMIN B COMPLEX [Concomitant]
     Active Substance: CYANOCOBALAMIN\DEXPANTHENOL\NIACINAMIDE\PYRIDOXINE HYDROCHLORIDE\RIBOFLAVIN 5^-PHOSPHATE SODIUM\THIA
  57. DIETARY SUPPLEMENT\HERBALS\MILK THISTLE [Concomitant]
     Active Substance: MILK THISTLE
  58. ALFALFA [MEDICAGO SATIVA] [Concomitant]

REACTIONS (7)
  - Spinal compression fracture [Not Recovered/Not Resolved]
  - Osteopenia [Not Recovered/Not Resolved]
  - Bone density decreased [Unknown]
  - Emotional distress [Not Recovered/Not Resolved]
  - Anhedonia [Not Recovered/Not Resolved]
  - Anxiety [Not Recovered/Not Resolved]
  - Pain [Not Recovered/Not Resolved]

NARRATIVE: CASE EVENT DATE: 20111229
